FAERS Safety Report 6552170-7 (Version None)
Quarter: 2010Q1

REPORT INFORMATION
  Report Type: 
  Country: None (occurrence: None)
  Receive Date: 20100126
  Receipt Date: 20100113
  Transmission Date: 20100710
  Serious: Yes (Hospitalization, Other)
  Sender: FDA-Public Use
  Company Number: CH-PFIZER INC-2010000165

PATIENT
  Age: 63 Year
  Sex: Male
  Weight: 73.5 kg

DRUGS (7)
  1. SUTENT [Suspect]
     Indication: RENAL CANCER
     Dosage: 50 MG, 1X/DAY
     Route: 048
     Dates: start: 20080327, end: 20080402
  2. TORISEL [Concomitant]
     Indication: RENAL CELL CARCINOMA
     Dosage: 25 MG, 1X/DAY
     Route: 042
     Dates: start: 20090108, end: 20090513
  3. STILNOX [Concomitant]
     Dosage: 10 MG, 1X/DAY
     Route: 048
  4. MARCUMAR [Concomitant]
     Dosage: 3 MG, 1X/DAY
     Route: 048
  5. CONCOR [Concomitant]
     Dosage: 5 MG, 1X/DAY
     Route: 048
  6. UNIFYL [Concomitant]
     Dosage: 600 MG, 1X/DAY
     Route: 048
  7. TORSEMIDE [Concomitant]
     Dosage: 10 MG, 1X/DAY
     Route: 048

REACTIONS (7)
  - DISEASE RECURRENCE [None]
  - DRUG TOXICITY [None]
  - LUNG INFECTION [None]
  - MALIGNANT NEOPLASM PROGRESSION [None]
  - METASTASES TO LUNG [None]
  - RENAL FAILURE [None]
  - TUBULOINTERSTITIAL NEPHRITIS [None]
